FAERS Safety Report 14631822 (Version 1)
Quarter: 2018Q1

REPORT INFORMATION
  Report Type: Other
  Country: US (occurrence: US)
  Receive Date: 20180313
  Receipt Date: 20180313
  Transmission Date: 20180509
  Serious: Yes (Hospitalization, Other)
  Sender: FDA-Public Use
  Company Number: US-AKRON, INC.-2043630

PATIENT
  Age: 7 Year
  Sex: Male

DRUGS (1)
  1. COSOPT [Suspect]
     Active Substance: DORZOLAMIDE HYDROCHLORIDE\TIMOLOL MALEATE
     Indication: EYE SWELLING
     Route: 047

REACTIONS (1)
  - Cavernous sinus thrombosis [Recovered/Resolved]
